FAERS Safety Report 5685239-X (Version None)
Quarter: 2008Q1

REPORT INFORMATION
  Report Type: 
  Country: None (occurrence: None)
  Receive Date: 20080328
  Receipt Date: 20080317
  Transmission Date: 20080703
  Serious: Yes (Other)
  Sender: FDA-Public Use
  Company Number: US-PFIZER INC-2008008998

PATIENT
  Sex: Female
  Weight: 80.7 kg

DRUGS (3)
  1. LYRICA [Suspect]
     Indication: FIBROMYALGIA
     Dates: start: 20071220, end: 20080109
  2. LIPITOR [Concomitant]
  3. CRESTOR [Concomitant]

REACTIONS (8)
  - ANORECTAL DISORDER [None]
  - BREAST CYST [None]
  - LACRIMATION INCREASED [None]
  - LICHEN PLANUS [None]
  - OEDEMA MOUTH [None]
  - SWOLLEN TONGUE [None]
  - TYPE 2 DIABETES MELLITUS [None]
  - VULVOVAGINAL DISCOMFORT [None]
